FAERS Safety Report 4492192-3 (Version None)
Quarter: 2004Q4

REPORT INFORMATION
  Report Type: 
  Country: None (occurrence: None)
  Receive Date: 20041103
  Receipt Date: 20040914
  Transmission Date: 20050328
  Serious: Yes (Life-Threatening, Hospitalization)
  Sender: FDA-Public Use
  Company Number: JP-MERCK-0409USA02242

PATIENT
  Age: 68 Year
  Sex: Female

DRUGS (5)
  1. FOSAMAX [Suspect]
     Indication: OSTEOPOROSIS
     Route: 048
     Dates: start: 20040806, end: 20040827
  2. FOSAMAX [Suspect]
     Indication: CARCINOEMBRYONIC ANTIGEN INCREASED
     Route: 048
     Dates: start: 20040806, end: 20040827
  3. ZALTOPROFEN [Concomitant]
     Indication: ANALGESIC EFFECT
     Route: 048
     Dates: end: 20040827
  4. SERRAPEPTASE [Concomitant]
     Route: 048
     Dates: end: 20040827
  5. AZULENE [Concomitant]
     Indication: GASTRITIS
     Route: 048
     Dates: end: 20040827

REACTIONS (2)
  - OVERDOSE [None]
  - THROMBOCYTOPENIC PURPURA [None]
